FAERS Safety Report 8127077-4 (Version None)
Quarter: 2011Q4

REPORT INFORMATION
  Report Type: 
  Country: None (occurrence: None)
  Receive Date: 20111227
  Receipt Date: 20110627
  Transmission Date: 20120403
  Serious: No
  Sender: FDA-Public Use
  Company Number: PHHY2011US10749

PATIENT
  Age: 46 Year
  Sex: Female

DRUGS (24)
  1. RHINOCORT [Concomitant]
  2. IMODIUM A-D [Concomitant]
  3. PROVENTIL [Concomitant]
  4. PEPTO-BISMOL (BISMUTH SUBSALICYLATE) [Concomitant]
  5. PREDNISONE TAB [Concomitant]
  6. EXCEDRIN (CAFFEINE, PARACETAMOL) [Concomitant]
  7. MAALOX (ALGELDRATE, MAGNESIUM HYDROXIDE) [Concomitant]
  8. GILENYA [Suspect]
     Indication: MULTIPLE SCLEROSIS
     Dosage: 0.5 MG, QD, ORAL
     Route: 048
     Dates: start: 20110224
  9. GAS-X (SIMETICONE) [Concomitant]
  10. ZYRTEC [Concomitant]
  11. ACETAMINOPHEN [Concomitant]
  12. GABAPENTIN [Concomitant]
  13. LACTAID (TILACTASE) [Concomitant]
  14. NAPROXEN [Concomitant]
  15. PULMICORT [Concomitant]
  16. OXYBUTYNIN CHLORIDE (OXYBUTYNIN HYDROCHLORIDE) [Concomitant]
  17. ANTIBIOTICS (NO INGREDIENTS/SUBSTANCES) [Concomitant]
  18. ASTELIN [Concomitant]
  19. SINGULAIR [Concomitant]
  20. MECLIZINE [Concomitant]
  21. HYDROCODONE BITARTRATE [Concomitant]
  22. REBIF [Concomitant]
  23. TOPROL-XL [Concomitant]
  24. ASPIRIN [Concomitant]

REACTIONS (5)
  - NAUSEA [None]
  - PAIN [None]
  - SINUSITIS [None]
  - CHILLS [None]
  - HEADACHE [None]
